FAERS Safety Report 10261718 (Version 3)
Quarter: 2014Q3

REPORT INFORMATION
  Report Type: Spontaneous
  Country: US (occurrence: US)
  Receive Date: 20140626
  Receipt Date: 20140829
  Transmission Date: 20150326
  Serious: Yes (Other)
  Sender: FDA-Public Use
  Company Number: US-PFIZER INC-2014174593

PATIENT
  Age: 64 Year
  Sex: Male
  Weight: 81.63 kg

DRUGS (5)
  1. MORPHINE [Concomitant]
     Active Substance: MORPHINE
     Indication: PAIN
     Dosage: 90 MG, 3X/DAY
  2. LYRICA [Suspect]
     Active Substance: PREGABALIN
     Dosage: 225 MG, DAILY (THREE 75 MG TABS PER DAY)
  3. LYRICA [Suspect]
     Active Substance: PREGABALIN
     Indication: SPINAL CORD INJURY
     Dosage: 75 MG, 3X/DAY
     Dates: start: 201311, end: 2014
  4. MORPHINE [Concomitant]
     Active Substance: MORPHINE
     Dosage: UNK
  5. LYRICA [Suspect]
     Active Substance: PREGABALIN
     Dosage: 150 MG, DAILY (TWO 75 MG TABS PER DAY)

REACTIONS (13)
  - Visual acuity reduced [Unknown]
  - Cataract [Unknown]
  - Mood altered [Unknown]
  - Suicidal ideation [Unknown]
  - Activities of daily living impaired [Unknown]
  - Logorrhoea [Unknown]
  - Drug withdrawal syndrome [Recovered/Resolved]
  - Impaired driving ability [Unknown]
  - Vision blurred [Recovered/Resolved]
  - Paraesthesia [Unknown]
  - Thinking abnormal [Unknown]
  - Visual impairment [Not Recovered/Not Resolved]
  - Increased appetite [Unknown]

NARRATIVE: CASE EVENT DATE: 2014
